FAERS Safety Report 13716312 (Version 3)
Quarter: 2017Q4

REPORT INFORMATION
  Report Type: Report from Study
  Country: US (occurrence: US)
  Receive Date: 20170705
  Receipt Date: 20171009
  Transmission Date: 20180320
  Serious: No
  Sender: FDA-Public Use
  Company Number: US-AMGEN-USASP2017097822

PATIENT
  Age: 21 Year
  Sex: Female

DRUGS (2)
  1. ENBREL [Suspect]
     Active Substance: ETANERCEPT
     Indication: ANKYLOSING SPONDYLITIS
     Dosage: 50 MG, QWK
     Route: 058
     Dates: start: 201705
  2. ENBREL [Suspect]
     Active Substance: ETANERCEPT
     Dosage: 25 MG, QWK
     Route: 058
     Dates: start: 2017, end: 201708

REACTIONS (10)
  - Sunburn [Unknown]
  - Therapy non-responder [Unknown]
  - Rash erythematous [Unknown]
  - Dehydration [Unknown]
  - Off label use [Unknown]
  - Chest pain [Not Recovered/Not Resolved]
  - Dyspnoea [Not Recovered/Not Resolved]
  - Anhidrosis [Unknown]
  - Fibromyalgia [Unknown]
  - Urticaria [Unknown]

NARRATIVE: CASE EVENT DATE: 2017
